FAERS Safety Report 16490911 (Version 1)
Quarter: 2019Q2

REPORT INFORMATION
  Report Type: Spontaneous
  Country: DE (occurrence: DE)
  Receive Date: 20190628
  Receipt Date: 20190628
  Transmission Date: 20190711
  Serious: Yes (Other)
  Sender: FDA-Public Use
  Company Number: DE-TEVA-2019-DE-1065833

PATIENT
  Age: 49 Year
  Sex: Male

DRUGS (5)
  1. GAVISCON [Concomitant]
     Active Substance: ALUMINUM HYDROXIDE\MAGNESIUM CARBONATE
  2. VITAMIN B12 ANKERMANN [Concomitant]
  3. PANTOPRAZOL-RATIOPHARM 20 MG MAGENSAFTRESISTENTE TABLETTEN [Suspect]
     Active Substance: PANTOPRAZOLE
     Indication: OESOPHAGEAL IRRITATION
     Dosage: 20 MILLIGRAM DAILY; TOOK FOR 20-25 YEARS, 1-0-0
     Route: 048
  4. VITAMIN D3 2.000 I.E. [Concomitant]
  5. MAGENSIUM 500 MG [Concomitant]

REACTIONS (7)
  - Poor peripheral circulation [Not Recovered/Not Resolved]
  - Pain in extremity [Not Recovered/Not Resolved]
  - Bone pain [Not Recovered/Not Resolved]
  - Burning sensation [Not Recovered/Not Resolved]
  - Arthralgia [Not Recovered/Not Resolved]
  - Muscle spasticity [Not Recovered/Not Resolved]
  - Suicidal ideation [Not Recovered/Not Resolved]
